FAERS Safety Report 10188861 (Version 2)
Quarter: 2018Q2

REPORT INFORMATION
  Report Type: Spontaneous
  Country: US (occurrence: US)
  Receive Date: 20140522
  Receipt Date: 20180618
  Transmission Date: 20180711
  Serious: Yes (Other)
  Sender: FDA-Public Use
  Company Number: US-SA-2014SA027802

PATIENT
  Age: 66 Year
  Sex: Female

DRUGS (1)
  1. LANTUS [Suspect]
     Active Substance: INSULIN GLARGINE
     Indication: DIABETES MELLITUS
     Dosage: 40 DF,QD
     Route: 051

REACTIONS (4)
  - Nasal congestion [Unknown]
  - Nasopharyngitis [Unknown]
  - Influenza like illness [Unknown]
  - Cataract [Not Recovered/Not Resolved]
